FAERS Safety Report 9224889 (Version 2)
Quarter: 2013Q4

REPORT INFORMATION
  Report Type: Spontaneous
  Country: GB (occurrence: None)
  Receive Date: 20130409
  Receipt Date: 20131203
  Transmission Date: 20140711
  Serious: Yes (Other)
  Sender: FDA-Public Use
  Company Number: AUR-APL-2013-02706

PATIENT
  Age: 78 Year
  Sex: Male
  Weight: 83 kg

DRUGS (7)
  1. SIMVASTATIN (SIMVASTATIN) [Suspect]
     Indication: BLOOD CHOLESTEROL INCREASED
     Dates: start: 2005, end: 2008
  2. PRAVASTATIN [Suspect]
     Indication: BLOOD CHOLESTEROL INCREASED
     Dates: start: 2005, end: 2008
  3. ATORVASTATIN [Suspect]
     Indication: BLOOD CHOLESTEROL INCREASED
     Dates: start: 2005, end: 2008
  4. EZETIMIBE [Suspect]
     Indication: BLOOD CHOLESTEROL INCREASED
     Dates: start: 2005, end: 2008
  5. FENOFIBRATE [Suspect]
     Indication: BLOOD CHOLESTEROL INCREASED
     Dates: start: 2008, end: 2008
  6. LIPITOR [Suspect]
     Indication: BLOOD CHOLESTEROL INCREASED
     Dates: start: 2005, end: 2008
  7. ROSUVASTATIN [Suspect]
     Indication: BLOOD CHOLESTEROL INCREASED
     Dates: start: 2005, end: 2008

REACTIONS (8)
  - Muscle fatigue [None]
  - Muscle atrophy [None]
  - Sleep disorder [None]
  - Fatigue [None]
  - Oedema mouth [None]
  - Constipation [None]
  - Gait disturbance [None]
  - Quality of life decreased [None]
